FAERS Safety Report 5375902-2 (Version None)
Quarter: 2007Q2

REPORT INFORMATION
  Report Type: 
  Country: None (occurrence: None)
  Receive Date: 20070627
  Receipt Date: 20070627
  Transmission Date: 20071010
  Serious: Yes (Hospitalization)
  Sender: FDA-Public Use
  Company Number: None

PATIENT
  Sex: Male
  Weight: 77.72 kg

DRUGS (1)
  1. ZOMETA [Suspect]

REACTIONS (4)
  - ANAEMIA [None]
  - DEHYDRATION [None]
  - DISEASE PROGRESSION [None]
  - IMPLANT SITE INFECTION [None]
